FAERS Safety Report 4351397-2 (Version None)
Quarter: 2004Q2

REPORT INFORMATION
  Report Type: 
  Country: None (occurrence: None)
  Receive Date: 20040430
  Receipt Date: 20040430
  Transmission Date: 20050107
  Serious: Yes (Hospitalization)
  Sender: FDA-Public Use
  Company Number: None

PATIENT
  Age: 81 Year
  Sex: Male
  Weight: 89.8122 kg

DRUGS (16)
  1. INDOMETHACIN [Suspect]
     Indication: GOUT
     Dosage: 50 MG QD ORAL
     Route: 048
     Dates: start: 20040223, end: 20040225
  2. AMLODIPINE [Concomitant]
  3. BUMETANIDE [Concomitant]
  4. ASPIRIN [Concomitant]
  5. CITALOPRAM [Concomitant]
  6. IPRATROPIUM/ALBUTEROL MDI [Concomitant]
  7. DOCUSATE SODIUM [Concomitant]
  8. GEMFIBROZIL [Concomitant]
  9. GLIPIZIDE [Concomitant]
  10. LISINOPRIL [Concomitant]
  11. NITROGLYCERIN [Concomitant]
  12. OMEPRAZOLE [Concomitant]
  13. PIROXICAM [Concomitant]
  14. KCL TAB [Concomitant]
  15. PROPOXYPHENE/APAP [Concomitant]
  16. SPIRONOLACTONE [Concomitant]

REACTIONS (3)
  - ABDOMINAL DISTENSION [None]
  - AZOTAEMIA [None]
  - WEIGHT INCREASED [None]
